FAERS Safety Report 7536481-4 (Version None)
Quarter: 2011Q2

REPORT INFORMATION
  Report Type: 
  Country: None (occurrence: None)
  Receive Date: 20110609
  Receipt Date: 20110531
  Transmission Date: 20111010
  Serious: Yes (Hospitalization)
  Sender: FDA-Public Use
  Company Number: DE-PFIZER INC-2010126526

PATIENT
  Age: 10 Year
  Sex: Male
  Weight: 19 kg

DRUGS (1)
  1. SOMATROPIN [Suspect]
     Indication: SMALL FOR DATES BABY
     Dosage: 0.6 MG, 1X/DAY
     Dates: start: 20100301, end: 20101001

REACTIONS (1)
  - CHORIORETINAL ATROPHY [None]
